FAERS Safety Report 18947833 (Version 1)
Quarter: 2021Q1

REPORT INFORMATION
  Report Type: Spontaneous
  Country: FR (occurrence: FR)
  Receive Date: 20210226
  Receipt Date: 20210226
  Transmission Date: 20210420
  Serious: Yes (Life-Threatening, Hospitalization, Other)
  Sender: FDA-Public Use
  Company Number: FR-GLAXOSMITHKLINE-FR2021EME053961

PATIENT
  Sex: Male
  Weight: 100 kg

DRUGS (14)
  1. HUMIRA [Suspect]
     Active Substance: ADALIMUMAB
     Dosage: 40 MG(ONCE AT 2 WEEKS)
     Dates: start: 20130630
  2. SEBIPROX [Suspect]
     Active Substance: CICLOPIROX OLAMINE
     Indication: PSORIASIS
     Dosage: UNK
     Dates: start: 20161219
  3. SEBIPROX [Suspect]
     Active Substance: CICLOPIROX OLAMINE
     Dosage: UNK
     Dates: start: 20180108
  4. ACITRETIN. [Suspect]
     Active Substance: ACITRETIN
     Indication: PSORIASIS
     Dosage: UNK
  5. STELARA [Suspect]
     Active Substance: USTEKINUMAB
     Dosage: 45 MG, ONCE EVERY 12 WEEKS;
     Route: 058
     Dates: start: 20170226
  6. CLARELUX [Suspect]
     Active Substance: CLOBETASOL PROPIONATE
     Dosage: UNK
     Dates: start: 20180108
  7. METHOTREXATE. [Suspect]
     Active Substance: METHOTREXATE
     Indication: PSORIASIS
     Dosage: 15 MG, Q WEEK
     Route: 048
     Dates: start: 2013
  8. HUMIRA [Suspect]
     Active Substance: ADALIMUMAB
     Indication: PSORIASIS
     Dosage: 80 MG, Q WEEK
     Route: 058
     Dates: start: 20130531
  9. STELARA [Suspect]
     Active Substance: USTEKINUMAB
     Indication: PSORIASIS
     Dosage: 45 MG, Z (ONCE EVERY 4 WEEKS)
     Route: 058
     Dates: start: 20170126
  10. DEXERYL (FRANCE) [Suspect]
     Active Substance: GLYCERIN\MINERAL OIL\PETROLATUM
     Indication: PSORIASIS
     Dosage: UNK
     Dates: start: 20161219
  11. DAIVOBET [Suspect]
     Active Substance: BETAMETHASONE DIPROPIONATE\CALCIPOTRIENE
     Indication: PSORIASIS
     Dosage: UNK
     Dates: start: 20161219
  12. CLARELUX [Suspect]
     Active Substance: CLOBETASOL PROPIONATE
     Indication: PSORIASIS
     Dosage: UNK
     Dates: start: 20161219
  13. STELARA [Suspect]
     Active Substance: USTEKINUMAB
     Dosage: 45 MG, ONCE EVERY 14 WEEKS
     Route: 048
     Dates: start: 20180110
  14. DAIVOBET [Suspect]
     Active Substance: BETAMETHASONE DIPROPIONATE\CALCIPOTRIENE
     Dosage: UNK
     Dates: start: 20190408

REACTIONS (3)
  - Type 2 diabetes mellitus [Recovering/Resolving]
  - Angioplasty [Recovered/Resolved]
  - Myocardial infarction [Recovered/Resolved]

NARRATIVE: CASE EVENT DATE: 2018
